FAERS Safety Report 25756971 (Version 1)
Quarter: 2025Q3

REPORT INFORMATION
  Report Type: Spontaneous
  Country: CN (occurrence: CN)
  Receive Date: 20250903
  Receipt Date: 20250903
  Transmission Date: 20251020
  Serious: Yes (Hospitalization, Other)
  Sender: ELI LILLY AND COMPANY
  Company Number: CN-ELI_LILLY_AND_COMPANY-CN202508029104

PATIENT
  Age: 54 Year
  Sex: Female
  Weight: 52 kg

DRUGS (1)
  1. ABEMACICLIB [Suspect]
     Active Substance: ABEMACICLIB
     Indication: Adjuvant therapy
     Dosage: 150 MG, BID
     Route: 048
     Dates: start: 20250728

REACTIONS (2)
  - Malignant neoplasm progression [Unknown]
  - Myelosuppression [Unknown]

NARRATIVE: CASE EVENT DATE: 20250819
